FAERS Safety Report 22234358 (Version 1)
Quarter: 2023Q2

REPORT INFORMATION
  Report Type: Spontaneous
  Country: US (occurrence: None)
  Receive Date: 20230420
  Receipt Date: 20230420
  Transmission Date: 20230721
  Serious: No
  Sender: FDA-Public Use
  Company Number: US-ROCHE-3204015

PATIENT
  Sex: Male

DRUGS (1)
  1. ESBRIET [Suspect]
     Active Substance: PIRFENIDONE
     Indication: Idiopathic pulmonary fibrosis
     Dosage: 1 CAPSULE THRE TIME A DAY FOR WEEK 1, 2 CAPSULE THRE TIME A DAY FOR WEEK 2, 3 CAPSULE THRE TIME A DA
     Route: 048
     Dates: start: 20221013

REACTIONS (3)
  - Nasopharyngitis [Unknown]
  - Cough [Unknown]
  - Haemoptysis [Unknown]
